FAERS Safety Report 7987669-X (Version None)
Quarter: 2011Q4

REPORT INFORMATION
  Report Type: 
  Country: None (occurrence: None)
  Receive Date: 20111216
  Receipt Date: 20111209
  Transmission Date: 20120403
  Serious: Yes (Hospitalization)
  Sender: FDA-Public Use
  Company Number: US-ABBOTT-11P-163-0882015-00

PATIENT
  Sex: Male
  Weight: 129.39 kg

DRUGS (4)
  1. METHOTREXATE [Concomitant]
     Indication: RHEUMATOID ARTHRITIS
  2. FOLIC ACID [Concomitant]
     Indication: RHEUMATOID ARTHRITIS
  3. HUMIRA [Suspect]
     Indication: RHEUMATOID ARTHRITIS
     Route: 058
     Dates: start: 20090101, end: 20100801
  4. HUMIRA [Suspect]
     Route: 058
     Dates: start: 20111101

REACTIONS (5)
  - URINE OUTPUT DECREASED [None]
  - OEDEMA PERIPHERAL [None]
  - BENIGN NEOPLASM OF BLADDER [None]
  - ABDOMINAL PAIN LOWER [None]
  - RHEUMATOID ARTHRITIS [None]
